FAERS Safety Report 25785650 (Version 1)
Quarter: 2025Q3

REPORT INFORMATION
  Report Type: Spontaneous
  Country: EU (occurrence: EU)
  Receive Date: 20250910
  Receipt Date: 20250910
  Transmission Date: 20251021
  Serious: Yes (Hospitalization)
  Sender: MYLAN
  Company Number: EU-MYLANLABS-2025M1076067

PATIENT
  Age: 9 Decade
  Sex: Male

DRUGS (5)
  1. TOBI [Suspect]
     Active Substance: TOBRAMYCIN
     Indication: Pseudomonas infection
     Dosage: 300 MILLIGRAM, BID
  2. TOBI [Suspect]
     Active Substance: TOBRAMYCIN
     Indication: Respiratory tract infection
     Dosage: 180 MILLIGRAM, BID (DOSE DECREASED TO EVERY 12 HOURS)
  3. TOBI [Suspect]
     Active Substance: TOBRAMYCIN
     Dosage: 300 MILLIGRAM, QD (EVERY 24 HOURS  AND LATER DOSE ADJUSTED FOR FULL 28 DAYS COURSE)
  4. MEROPENEM [Concomitant]
     Active Substance: MEROPENEM
     Indication: Pseudomonas infection
     Dosage: 1 GRAM, Q8H
  5. MEROPENEM [Concomitant]
     Active Substance: MEROPENEM
     Indication: Respiratory tract infection

REACTIONS (3)
  - Drug level increased [Recovered/Resolved]
  - Ototoxicity [Recovered/Resolved]
  - Drug-disease interaction [Recovered/Resolved]
